FAERS Safety Report 9643708 (Version 6)
Quarter: 2014Q3

REPORT INFORMATION
  Report Type: Spontaneous
  Country: FR (occurrence: FR)
  Receive Date: 20131024
  Receipt Date: 20140805
  Transmission Date: 20150326
  Serious: Yes (Other)
  Sender: FDA-Public Use
  Company Number: FR-PFIZER INC-2013299680

PATIENT
  Age: 58 Year
  Sex: Male

DRUGS (5)
  1. TERALITHE [Concomitant]
     Active Substance: LITHIUM CARBONATE
     Indication: BIPOLAR I DISORDER
     Dosage: 250 MG, TWICE A DAY
     Route: 048
     Dates: start: 1992
  2. EUPHYTOSE [Concomitant]
     Active Substance: HERBALS
     Dosage: UNK
     Route: 048
  3. XANAX [Suspect]
     Active Substance: ALPRAZOLAM
     Indication: ANXIETY
  4. XANAX [Suspect]
     Active Substance: ALPRAZOLAM
     Indication: BIPOLAR DISORDER
     Dosage: 0.5 MG, 4X/DAY
  5. TERCIAN [Concomitant]
     Active Substance: CYAMEMAZINE
     Indication: BIPOLAR I DISORDER
     Dosage: 25 MG, ONCE A DAY
     Route: 048
     Dates: start: 1992

REACTIONS (12)
  - Dementia Alzheimer^s type [Unknown]
  - Drug dependence [Unknown]
  - Off label use [Unknown]
  - Memory impairment [Not Recovered/Not Resolved]
  - Palpitations [Not Recovered/Not Resolved]
  - Insomnia [Unknown]
  - Blood pressure decreased [Unknown]
  - Fatigue [Unknown]
  - Disorientation [Unknown]
  - Bradycardia [Not Recovered/Not Resolved]
  - Panic disorder [Unknown]
  - Disturbance in attention [Unknown]

NARRATIVE: CASE EVENT DATE: 2010
